FAERS Safety Report 9080438 (Version 1)
Quarter: 2013Q1

REPORT INFORMATION
  Report Type: Spontaneous
  Country: US (occurrence: US)
  Receive Date: 20130131
  Receipt Date: 20130131
  Transmission Date: 20140127
  Serious: Yes (Hospitalization)
  Sender: FDA-Public Use
  Company Number: US-AMGEN-USASP2013005113

PATIENT
  Age: 65 Year
  Sex: Female

DRUGS (1)
  1. EPOGEN [Suspect]
     Indication: ANAEMIA
     Dosage: 80000 UNIT, QD

REACTIONS (5)
  - Respiratory failure [Unknown]
  - Septic shock [Unknown]
  - Clostridium difficile infection [Unknown]
  - Renal disorder [Unknown]
  - Thalassaemia [Unknown]
